FAERS Safety Report 12667559 (Version 2)
Quarter: 2016Q3

REPORT INFORMATION
  Report Type: Spontaneous
  Country: FI (occurrence: FI)
  Receive Date: 20160819
  Receipt Date: 20160909
  Transmission Date: 20161109
  Serious: Yes (Death, Other)
  Sender: FDA-Public Use
  Company Number: FI-ALEXION PHARMACEUTICALS INC-A201604679

PATIENT
  Age: 23 Day
  Sex: Male

DRUGS (4)
  1. SOLIRIS [Suspect]
     Active Substance: ECULIZUMAB
     Dosage: 150 MG, UNK
     Route: 042
     Dates: start: 20160701, end: 20160701
  2. SOLIRIS [Suspect]
     Active Substance: ECULIZUMAB
     Indication: HAEMOCHROMATOSIS
     Dosage: 150 MG, UNK
     Route: 042
     Dates: start: 20160617, end: 20160617
  3. SOLIRIS [Suspect]
     Active Substance: ECULIZUMAB
     Dosage: 150 MG, UNK
     Route: 042
     Dates: start: 20160630, end: 20160630
  4. SOLIRIS [Suspect]
     Active Substance: ECULIZUMAB
     Indication: OFF LABEL USE
     Dosage: 150 MG, UNK
     Route: 042
     Dates: start: 20160618, end: 20160618

REACTIONS (3)
  - Staphylococcal sepsis [Fatal]
  - Haemochromatosis [Fatal]
  - Off label use [Unknown]

NARRATIVE: CASE EVENT DATE: 20160617
